FAERS Safety Report 12380611 (Version 2)
Quarter: 2016Q2

REPORT INFORMATION
  Report Type: Spontaneous
  Country: GB (occurrence: GB)
  Receive Date: 20160518
  Receipt Date: 20160624
  Transmission Date: 20160815
  Serious: Yes (Disabling)
  Sender: FDA-Public Use
  Company Number: GB-AUROBINDO-AUR-APL-2016-05958

PATIENT
  Age: 45 Year
  Sex: Male
  Weight: 68 kg

DRUGS (3)
  1. BISOPROLOL 1.25 MG [Suspect]
     Active Substance: BISOPROLOL
     Indication: HEART DISEASE CONGENITAL
     Dosage: 1.25 MG, ONCE A DAY
     Route: 048
     Dates: start: 20160301
  2. OMEPRAZOLE. [Concomitant]
     Active Substance: OMEPRAZOLE
     Indication: PRODUCT USED FOR UNKNOWN INDICATION
     Route: 065
  3. CLOPIDOGREL [Concomitant]
     Active Substance: CLOPIDOGREL BISULFATE
     Indication: ANTICOAGULANT THERAPY
     Dosage: NO LONGER TAKING THIS.
     Route: 065

REACTIONS (3)
  - Dizziness [Not Recovered/Not Resolved]
  - Presyncope [Not Recovered/Not Resolved]
  - Syncope [Unknown]

NARRATIVE: CASE EVENT DATE: 20160306
